FAERS Safety Report 9027871 (Version 1)
Quarter: 2013Q1

REPORT INFORMATION
  Report Type: Spontaneous
  Country: US (occurrence: None)
  Receive Date: 20130115
  Receipt Date: 20130115
  Transmission Date: 20140127
  Serious: Yes (Disabling)
  Sender: FDA-Public Use
  Company Number: None

PATIENT
  Age: 59 Year
  Sex: Male
  Weight: 65.77 kg

DRUGS (1)
  1. LIALDA [Suspect]
     Route: 048
     Dates: start: 20100101, end: 20121201

REACTIONS (3)
  - Proctalgia [None]
  - Rash [None]
  - Inflammation [None]
